FAERS Safety Report 5553586-8 (Version None)
Quarter: 2007Q4

REPORT INFORMATION
  Report Type: 
  Country: None (occurrence: None)
  Receive Date: 20071213
  Receipt Date: 20071116
  Transmission Date: 20080405
  Serious: No
  Sender: FDA-Public Use
  Company Number: US-BAYER-200715479NA

PATIENT
  Age: 44 Year
  Sex: Female
  Weight: 163 kg

DRUGS (5)
  1. ULTRAVIST 370 [Suspect]
     Indication: COMPUTERISED TOMOGRAM
     Dosage: AS USED: 150 ML
     Route: 042
     Dates: start: 20071116, end: 20071116
  2. LANTUS [Concomitant]
  3. ACTOS [Concomitant]
  4. ALEVE [Concomitant]
  5. LISINOPRIL [Concomitant]

REACTIONS (1)
  - PRURITUS [None]
